FAERS Safety Report 15122656 (Version 7)
Quarter: 2020Q1

REPORT INFORMATION
  Report Type: Spontaneous
  Country: US (occurrence: US)
  Receive Date: 20180709
  Receipt Date: 20200116
  Transmission Date: 20200409
  Serious: Yes (Death, Other)
  Sender: FDA-Public Use
  Company Number: US-PFIZER INC-2018270992

PATIENT
  Age: 47 Year
  Sex: Female

DRUGS (4)
  1. IBRANCE [Suspect]
     Active Substance: PALBOCICLIB
     Dosage: 100 MG, CYCLIC (EVERY DAY FOR 21 DAYS, THEN 7 DAYS OFF)/(DAILY FOR 21 DAYS FOLLOWED BY 1 WEEK BREAK)
     Route: 048
     Dates: start: 201803
  2. IBRANCE [Suspect]
     Active Substance: PALBOCICLIB
     Indication: BREAST CANCER METASTATIC
     Dosage: 125 MG, UNK
  3. LUPRON [Concomitant]
     Active Substance: LEUPROLIDE ACETATE
     Indication: BREAST CANCER
     Dosage: UNK
  4. IRON [Concomitant]
     Active Substance: IRON
     Dosage: UNK

REACTIONS (15)
  - Product dose omission [Unknown]
  - Musculoskeletal chest pain [Unknown]
  - White blood cell count decreased [Unknown]
  - Premature menopause [Unknown]
  - Muscle spasms [Unknown]
  - Death [Fatal]
  - Haemorrhage [Unknown]
  - Fatigue [Unknown]
  - Faeces soft [Recovered/Resolved]
  - Pain [Unknown]
  - Pain in extremity [Unknown]
  - Epistaxis [Unknown]
  - Alopecia [Unknown]
  - Sensitive skin [Recovered/Resolved]
  - Head discomfort [Unknown]
